FAERS Safety Report 24731036 (Version 1)
Quarter: 2024Q4

REPORT INFORMATION
  Report Type: Spontaneous
  Country: US (occurrence: None)
  Receive Date: 20241212
  Receipt Date: 20241212
  Transmission Date: 20250114
  Serious: Yes (Other)
  Sender: Public
  Company Number: None

PATIENT
  Age: 57 Year
  Sex: Female

DRUGS (1)
  1. TERIFLUNOMIDE [Suspect]
     Active Substance: TERIFLUNOMIDE
     Indication: Multiple sclerosis
     Dosage: 14MG QD

REACTIONS (7)
  - Acute leukaemia [None]
  - Fatigue [None]
  - Neuralgia [None]
  - Alopecia [None]
  - Pain [None]
  - Fall [None]
  - Ligament sprain [None]
